FAERS Safety Report 21047436 (Version 1)
Quarter: 2022Q3

REPORT INFORMATION
  Report Type: Report from Study
  Country: US (occurrence: US)
  Receive Date: 20220706
  Receipt Date: 20220706
  Transmission Date: 20221027
  Serious: Yes (Hospitalization)
  Sender: FDA-Public Use
  Company Number: US-CLOVIS ONCOLOGY-CLO-2022-000768

PATIENT
  Sex: Male

DRUGS (1)
  1. RUBRACA [Suspect]
     Active Substance: RUCAPARIB CAMSYLATE
     Indication: Prostate cancer
     Dosage: 500 MILLIGRAM, BID
     Route: 048
     Dates: start: 20210224

REACTIONS (1)
  - Adverse event [Unknown]
